FAERS Safety Report 14661479 (Version 1)
Quarter: 2018Q1

REPORT INFORMATION
  Report Type: Spontaneous
  Country: DE (occurrence: DE)
  Receive Date: 20180320
  Receipt Date: 20180320
  Transmission Date: 20180509
  Serious: Yes (Other)
  Sender: FDA-Public Use
  Company Number: DE-PFIZER INC-2018108984

PATIENT
  Age: 38 Year
  Sex: Male

DRUGS (5)
  1. VENLAFAXINE HCL [Suspect]
     Active Substance: VENLAFAXINE HYDROCHLORIDE
     Dosage: 15 DF, UNK
     Dates: start: 20090625, end: 20090625
  2. PALIPERIDONE. [Suspect]
     Active Substance: PALIPERIDONE
     Dosage: 15 DF, UNK (15 DOSAGE FORM=15 TABS)
  3. ABILIFY [Suspect]
     Active Substance: ARIPIPRAZOLE
     Dosage: 1 DF, UNK (1 DOSAGE FORM=8-10 TABS)
     Route: 048
     Dates: start: 20090625, end: 20090625
  4. FLUOXETINE HYDROCHLORIDE. [Suspect]
     Active Substance: FLUOXETINE HYDROCHLORIDE
     Dosage: 1 DF, UNK (1 DOSAGE FORM=8-10 TABS)
     Dates: start: 20090625, end: 20090625
  5. VALDOXAN [Suspect]
     Active Substance: AGOMELATINE
     Dosage: 1 DF, UNK (1 DOSAGE FORM=20 TABS)
     Dates: start: 20090625, end: 20090625

REACTIONS (2)
  - Intentional overdose [Unknown]
  - Suicide attempt [Recovered/Resolved]

NARRATIVE: CASE EVENT DATE: 20090625
